FAERS Safety Report 8871550 (Version 4)
Quarter: 2013Q2

REPORT INFORMATION
  Report Type: Report from Study
  Country: CA (occurrence: CA)
  Receive Date: 20121029
  Receipt Date: 20130524
  Transmission Date: 20140414
  Serious: Yes (Hospitalization)
  Sender: FDA-Public Use
  Company Number: CA-ROCHE-1125345

PATIENT
  Age: 55 Year
  Sex: Female
  Weight: 77 kg

DRUGS (7)
  1. ACTEMRA [Suspect]
     Indication: RHEUMATOID ARTHRITIS
     Route: 042
     Dates: start: 20120130, end: 20130415
  2. LYRICA [Concomitant]
  3. FOSAMAX [Concomitant]
  4. LOSEC (CANADA) [Concomitant]
  5. RALIVIA [Concomitant]
  6. ULTRADOL [Concomitant]
  7. FLUOXETINE [Concomitant]

REACTIONS (5)
  - Clostridium difficile infection [Not Recovered/Not Resolved]
  - Femur fracture [Not Recovered/Not Resolved]
  - Fall [Recovered/Resolved]
  - Localised infection [Unknown]
  - Ingrowing nail [Not Recovered/Not Resolved]
